FAERS Safety Report 25300907 (Version 4)
Quarter: 2025Q4

REPORT INFORMATION
  Report Type: Report from Study
  Country: US (occurrence: US)
  Receive Date: 20250512
  Receipt Date: 20251009
  Transmission Date: 20260118
  Serious: Yes (Other)
  Sender: BIOGEN
  Company Number: US-BIOGEN-2025BI01310410

PATIENT
  Age: 38 Year
  Sex: Female

DRUGS (2)
  1. ZURZUVAE [Suspect]
     Active Substance: ZURANOLONE
     Indication: Perinatal depression
     Dosage: IN THE EVENING (QPM)
     Route: 050
     Dates: start: 20250429, end: 20250510
  2. MELATONIN [Concomitant]
     Active Substance: MELATONIN
     Indication: Product used for unknown indication
     Route: 050

REACTIONS (2)
  - Suicidal ideation [Not Recovered/Not Resolved]
  - Perinatal depression [Unknown]

NARRATIVE: CASE EVENT DATE: 20250430
